FAERS Safety Report 5751351-X (Version None)
Quarter: 2008Q2

REPORT INFORMATION
  Report Type: 
  Country: None (occurrence: None)
  Receive Date: 20080519
  Receipt Date: 20070424
  Transmission Date: 20081010
  Serious: Yes (Other)
  Sender: FDA-Public Use
  Company Number: HQWYE841025APR07

PATIENT
  Age: 39 Year
  Sex: Female
  Weight: 61.29 kg

DRUGS (1)
  1. ADVIL ALLERGY SINUS [Suspect]
     Indication: HYPERSENSITIVITY
     Dosage: 2 TABLETS ONCE, ORAL
     Route: 047
     Dates: start: 20070423, end: 20070423

REACTIONS (2)
  - FEELING JITTERY [None]
  - INSOMNIA [None]
